FAERS Safety Report 8860178 (Version 1)
Quarter: 2012Q4

REPORT INFORMATION
  Report Type: 
  Country: DE (occurrence: DE)
  Receive Date: 20121025
  Receipt Date: 20121025
  Transmission Date: 20130627
  Serious: Yes (Hospitalization, Other)
  Sender: FDA-Public Use
  Company Number: DE-UCBSA-069365

PATIENT
  Age: 26 Year
  Sex: Male

DRUGS (4)
  1. KEPPRA [Suspect]
     Dosage: TOTAL AMOUNT: 1000 MG
     Route: 048
     Dates: start: 20121018
  2. COCAINE [Suspect]
     Dosage: QUANTITY:1-2 GR
     Route: 048
     Dates: start: 20121018
  3. DIAZEPAM [Suspect]
     Dosage: 10 TABLETS
     Route: 048
     Dates: start: 20121018
  4. TETRAZEPAM [Suspect]
     Dosage: 10 TABLETS
     Route: 048
     Dates: start: 20121018

REACTIONS (4)
  - Suicide attempt [Unknown]
  - Hypotension [Unknown]
  - Bradycardia [Unknown]
  - Overdose [Unknown]
